FAERS Safety Report 6332306-3 (Version None)
Quarter: 2009Q3

REPORT INFORMATION
  Report Type: 
  Country: None (occurrence: None)
  Receive Date: 20090828
  Receipt Date: 20090819
  Transmission Date: 20100115
  Serious: No
  Sender: FDA-Public Use
  Company Number: PHHY2009MX34196

PATIENT
  Age: 89 Year
  Sex: Male

DRUGS (2)
  1. EXELON [Suspect]
     Dosage: 1PATCH (5 CM2), QD
     Route: 062
     Dates: start: 20090530, end: 20090531
  2. LENDORMIN [Concomitant]
     Dosage: UNK

REACTIONS (10)
  - ANAPHYLACTIC REACTION [None]
  - BALANCE DISORDER [None]
  - CONCOMITANT DISEASE AGGRAVATED [None]
  - CONVULSION [None]
  - DIPLOPIA [None]
  - DIZZINESS [None]
  - HYPOACUSIS [None]
  - IIIRD NERVE PARALYSIS [None]
  - NAUSEA [None]
  - TREMOR [None]
